FAERS Safety Report 7071510-6 (Version None)
Quarter: 2010Q4

REPORT INFORMATION
  Report Type: 
  Country: None (occurrence: None)
  Receive Date: 20101029
  Receipt Date: 20090915
  Transmission Date: 20110411
  Serious: No
  Sender: FDA-Public Use
  Company Number: A0807416A

PATIENT
  Age: 75 Year
  Sex: Female

DRUGS (8)
  1. ADVAIR DISKUS 100/50 [Suspect]
     Indication: ASTHMA
     Dosage: 1PUFF THREE TIMES PER DAY
     Route: 055
     Dates: start: 20090913
  2. AMLODIPINE [Concomitant]
  3. PRAVASTATIN [Concomitant]
  4. VIACTIV [Concomitant]
  5. MULTI-VITAMINS [Concomitant]
  6. XANAX [Concomitant]
  7. GLUCOSAMINE/CHONDROITIN [Concomitant]
  8. METAMUCIL-2 [Concomitant]

REACTIONS (2)
  - DYSPHONIA [None]
  - GLOSSITIS [None]
